FAERS Safety Report 7134328-1 (Version None)
Quarter: 2010Q4

REPORT INFORMATION
  Report Type: 
  Country: None (occurrence: None)
  Receive Date: 20101203
  Receipt Date: 20101115
  Transmission Date: 20110411
  Serious: Yes (Hospitalization, Other)
  Sender: FDA-Public Use
  Company Number: ES-ASTRAZENECA-2010SE54680

PATIENT
  Age: 82 Year
  Sex: Male

DRUGS (8)
  1. TENORMIN [Suspect]
     Route: 048
     Dates: start: 20100706
  2. DISTRANEURINE [Interacting]
     Indication: AGITATION
     Route: 048
     Dates: start: 20100706, end: 20100707
  3. ADIRO [Interacting]
     Indication: ACUTE CORONARY SYNDROME
     Route: 048
     Dates: start: 20100706
  4. NORVASC [Interacting]
     Indication: ANGINA PECTORIS
     Route: 048
     Dates: start: 20100706, end: 20100730
  5. CARDYL [Interacting]
     Indication: ACUTE CORONARY SYNDROME
     Route: 048
     Dates: start: 20100706, end: 20100712
  6. PLAVIX [Interacting]
     Indication: ACUTE CORONARY SYNDROME
     Route: 048
     Dates: start: 20100709, end: 20100714
  7. UNIKET [Interacting]
     Indication: ACUTE CORONARY SYNDROME
     Route: 048
     Dates: start: 20100706, end: 20100713
  8. PANTOPRAZOLE [Interacting]
     Indication: PROPHYLAXIS AGAINST GASTROINTESTINAL ULCER
     Route: 048
     Dates: start: 20100709

REACTIONS (2)
  - DRUG INTERACTION [None]
  - HEPATITIS CHOLESTATIC [None]
